FAERS Safety Report 5729839-7 (Version None)
Quarter: 2008Q2

REPORT INFORMATION
  Report Type: 
  Country: None (occurrence: None)
  Receive Date: 20080501
  Receipt Date: 20080421
  Transmission Date: 20081010
  Serious: Yes (Death, Life-Threatening, Hospitalization)
  Sender: FDA-Public Use
  Company Number: 000735

PATIENT
  Age: 55 Year
  Sex: Female

DRUGS (9)
  1. BUSULFEX [Suspect]
     Indication: STEM CELL TRANSPLANT
     Dosage: 18 ML, INTRAVENOUS; 24 ML, INTRAVENOUS; 6 ML, INTRAVENOUS
     Route: 042
     Dates: start: 20070116, end: 20070116
  2. BUSULFEX [Suspect]
     Indication: STEM CELL TRANSPLANT
     Dosage: 18 ML, INTRAVENOUS; 24 ML, INTRAVENOUS; 6 ML, INTRAVENOUS
     Route: 042
     Dates: start: 20070117, end: 20070119
  3. BUSULFEX [Suspect]
     Indication: STEM CELL TRANSPLANT
     Dosage: 18 ML, INTRAVENOUS; 24 ML, INTRAVENOUS; 6 ML, INTRAVENOUS
     Route: 042
     Dates: start: 20070120, end: 20070120
  4. CYCLOPHOSPHAMIDE [Concomitant]
  5. PHENYTOIN [Concomitant]
  6. NARTOGRASTIN [Concomitant]
  7. NEUPOGEN [Concomitant]
  8. LENOGRASTIM (LENOGRASTIM) [Concomitant]
  9. METHOTREXATE [Concomitant]

REACTIONS (20)
  - ACUTE GRAFT VERSUS HOST DISEASE [None]
  - ALTERED STATE OF CONSCIOUSNESS [None]
  - ANOREXIA [None]
  - CYTOMEGALOVIRUS INFECTION [None]
  - DISEASE RECURRENCE [None]
  - DISSEMINATED INTRAVASCULAR COAGULATION [None]
  - ENCEPHALITIS [None]
  - ENCEPHALOPATHY [None]
  - MALAISE [None]
  - NAUSEA [None]
  - NEUTROPHIL COUNT DECREASED [None]
  - PERIPHERAL SENSORY NEUROPATHY [None]
  - PNEUMONIA [None]
  - PYREXIA [None]
  - RESPIRATORY DISORDER [None]
  - STAPHYLOCOCCAL SEPSIS [None]
  - STOMATITIS [None]
  - TREMOR [None]
  - VOMITING [None]
  - WEIGHT INCREASED [None]
